FAERS Safety Report 6479824-5 (Version None)
Quarter: 2009Q4

REPORT INFORMATION
  Report Type: 
  Country: None (occurrence: None)
  Receive Date: 20091208
  Receipt Date: 20091127
  Transmission Date: 20100525
  Serious: Yes (Hospitalization, Other)
  Sender: FDA-Public Use
  Company Number: SE-ABBOTT-08P-150-0474940-00

PATIENT
  Sex: Female

DRUGS (1)
  1. REDUCTIL [Suspect]
     Indication: OVERWEIGHT

REACTIONS (2)
  - LEIOMYOMA [None]
  - URINARY RETENTION [None]
